FAERS Safety Report 5064579-1 (Version None)
Quarter: 2006Q3

REPORT INFORMATION
  Report Type: 
  Country: None (occurrence: None)
  Receive Date: 20060706
  Receipt Date: 20060524
  Transmission Date: 20061208
  Serious: No
  Sender: FDA-Public Use
  Company Number: 200613525BWH

PATIENT
  Age: 80 Year
  Sex: Male

DRUGS (13)
  1. LEVITRA [Suspect]
     Indication: ERECTILE DYSFUNCTION
     Dosage: SEE IMAGE
     Route: 048
     Dates: start: 20060515
  2. LEVITRA [Suspect]
     Indication: ERECTILE DYSFUNCTION
     Dosage: SEE IMAGE
     Route: 048
     Dates: start: 20060519
  3. COLACE [Concomitant]
  4. ATENOLOL [Concomitant]
  5. COUMADIN [Concomitant]
  6. LEVOTHYROXINE SODIUM [Concomitant]
  7. ZOCOR [Concomitant]
  8. FOZAMAX [Concomitant]
  9. ASPIRIN [Concomitant]
  10. ATROVENT [Concomitant]
  11. TERAZOSIN HCL [Concomitant]
  12. ZANTAC [Concomitant]
  13. CELEBREX [Concomitant]

REACTIONS (1)
  - ERECTILE DYSFUNCTION [None]
